FAERS Safety Report 24332593 (Version 1)
Quarter: 2024Q3

REPORT INFORMATION
  Report Type: Spontaneous
  Country: US (occurrence: None)
  Receive Date: 20240917
  Receipt Date: 20240917
  Transmission Date: 20241017
  Serious: Yes (Other)
  Sender: Public
  Company Number: None

PATIENT
  Age: 5 Year
  Sex: Male
  Weight: 22.5 kg

DRUGS (2)
  1. AVEENO ECZEMA THERAPY NIGHTTIME ITCH RELIEF BALM [Suspect]
     Active Substance: OATMEAL
     Indication: Eczema
     Dosage: 11 OUNCES TWICE A DAY TOPICAL
     Route: 061
  2. Flintstones multivitamins [Concomitant]

REACTIONS (1)
  - Rash [None]

NARRATIVE: CASE EVENT DATE: 20240916
